FAERS Safety Report 8523204-5 (Version None)
Quarter: 2012Q3

REPORT INFORMATION
  Report Type: 
  Country: None (occurrence: None)
  Receive Date: 20120713
  Receipt Date: 20120713
  Transmission Date: 20120928
  Serious: Yes (Hospitalization)
  Sender: FDA-Public Use
  Company Number: None

PATIENT
  Age: 79 Year
  Sex: Female
  Weight: 43 kg

DRUGS (4)
  1. QUINAPRIL [Suspect]
  2. LEVOTHYROXINE SODIUM [Suspect]
  3. DICLOFENAC SODIUM [Suspect]
     Indication: RHEUMATOID ARTHRITIS
     Dosage: 75 MG BID PO LONG TERM PRIOR TO ADMIT
     Route: 048
  4. DIGOXIN [Suspect]

REACTIONS (7)
  - BRADYCARDIA [None]
  - DECREASED APPETITE [None]
  - ANAEMIA [None]
  - GASTROINTESTINAL HAEMORRHAGE [None]
  - ASTHENIA [None]
  - FATIGUE [None]
  - TOXICITY TO VARIOUS AGENTS [None]
